FAERS Safety Report 25459545 (Version 1)
Quarter: 2025Q2

REPORT INFORMATION
  Report Type: Spontaneous
  Country: CN (occurrence: CN)
  Receive Date: 20250620
  Receipt Date: 20250620
  Transmission Date: 20250716
  Serious: Yes (Life-Threatening, Other)
  Sender: NOVITIUM PHARMA
  Company Number: CN-NOVITIUMPHARMA-2025CNNVP01397

PATIENT
  Age: 61 Year
  Sex: Male

DRUGS (6)
  1. DEXAMETHASONE [Suspect]
     Active Substance: DEXAMETHASONE
     Indication: T-cell lymphoma
  2. MITOXANTRONE HYDROCHLORIDE [Concomitant]
     Active Substance: MITOXANTRONE HYDROCHLORIDE
  3. PEGASPARGASE [Concomitant]
     Active Substance: PEGASPARGASE
  4. METHOTREXATE [Concomitant]
     Active Substance: METHOTREXATE
  5. ETOPOSIDE [Concomitant]
     Active Substance: ETOPOSIDE
  6. GEMCITABINE [Concomitant]
     Active Substance: GEMCITABINE

REACTIONS (3)
  - Cytopenia [Unknown]
  - Skin hyperpigmentation [Unknown]
  - Drug ineffective [Unknown]
